FAERS Safety Report 9345311 (Version 3)
Quarter: 2013Q3

REPORT INFORMATION
  Report Type: Spontaneous
  Country: US (occurrence: US)
  Receive Date: 20130613
  Receipt Date: 20130816
  Transmission Date: 20140515
  Serious: Yes (Hospitalization, Other)
  Sender: FDA-Public Use
  Company Number: US-AMGEN-USASP2013040882

PATIENT
  Age: 29 Year
  Sex: Female

DRUGS (4)
  1. ENBREL [Suspect]
     Indication: PRODUCT USED FOR UNKNOWN INDICATION
     Dosage: 50 MG, QWK
     Route: 065
     Dates: start: 20050101
  2. PRENATAL                           /01529801/ [Concomitant]
     Dosage: UNK UNK, QD
  3. TYLENOL                            /00020001/ [Concomitant]
     Dosage: UNK UNK, AS NECESSARY
  4. CLARITONE [Concomitant]
     Dosage: UNK UNK, QD

REACTIONS (2)
  - Subchorionic haemorrhage [Recovered/Resolved]
  - Caesarean section [Unknown]
